FAERS Safety Report 14525648 (Version 1)
Quarter: 2020Q3

REPORT INFORMATION
  Report Type: Report from Study
  Country: KR (occurrence: KR)
  Receive Date: 20180213
  Receipt Date: 20180213
  Transmission Date: 20201105
  Serious: Yes (Death)
  Sender: FDA-Public Use
  Company Number: KR-PFIZER INC-2018057620

PATIENT

DRUGS (4)
  1. CARBOPLATIN. [Suspect]
     Active Substance: CARBOPLATIN
     Indication: NEOPLASM
     Dosage: AUC 5, CYCLIC (SIX CYCLES)
  2. ADAVOSERTIB. [Suspect]
     Active Substance: ADAVOSERTIB
     Dosage: 225 MG, BID FOR 2.5 DAYS PER 21?DAY CYCLE
     Route: 048
  3. ADAVOSERTIB. [Suspect]
     Active Substance: ADAVOSERTIB
     Indication: NEOPLASM
     Dosage: 225 MG, SINGLE
     Route: 048
  4. PACLITAXEL. [Suspect]
     Active Substance: PACLITAXEL
     Indication: NEOPLASM
     Dosage: 175 MG/M2, CYCLIC (SIX CYCLES)

REACTIONS (1)
  - Acute respiratory distress syndrome [Fatal]
